FAERS Safety Report 7404239-2 (Version None)
Quarter: 2011Q2

REPORT INFORMATION
  Report Type: 
  Country: None (occurrence: None)
  Receive Date: 20110408
  Receipt Date: 20110315
  Transmission Date: 20111010
  Serious: Yes (Other)
  Sender: FDA-Public Use
  Company Number: PHHY2010DE08162

PATIENT
  Sex: Female

DRUGS (6)
  1. GLEEVEC [Suspect]
     Dosage: 100 MG, DAILY
     Route: 048
  2. SANDIMMUNE [Concomitant]
  3. GLEEVEC [Suspect]
     Dosage: 50 MG, DAILY
     Route: 048
  4. CORTISON [Concomitant]
  5. GLEEVEC [Suspect]
     Indication: PULMONARY FIBROSIS
     Dosage: 200 MG, UNK
     Route: 048
     Dates: start: 20100101
  6. GLEEVEC [Suspect]
     Indication: GRAFT VERSUS HOST DISEASE
     Dosage: 400 MG, UNK
     Route: 048
     Dates: start: 20091101

REACTIONS (4)
  - OEDEMA PERIPHERAL [None]
  - URINARY RETENTION [None]
  - CARDIAC DISORDER [None]
  - DYSPNOEA [None]
